FAERS Safety Report 18184940 (Version 2)
Quarter: 2020Q3

REPORT INFORMATION
  Report Type: Report from Study
  Country: DE (occurrence: DE)
  Receive Date: 20200824
  Receipt Date: 20200827
  Transmission Date: 20201103
  Serious: Yes (Hospitalization)
  Sender: FDA-Public Use
  Company Number: DE-CELLTRION INC.-2019DE027910

PATIENT

DRUGS (4)
  1. TRUXIMA [Suspect]
     Active Substance: RITUXIMAB-ABBS
     Indication: MARGINAL ZONE LYMPHOMA
     Dosage: 562.5 MG, DAILY
     Route: 042
     Dates: start: 20191218, end: 20200114
  2. COPANLISIB. [Suspect]
     Active Substance: COPANLISIB
     Indication: MARGINAL ZONE LYMPHOMA
     Dosage: 60 MG
     Route: 042
     Dates: start: 20191218, end: 20200114
  3. TRUXIMA [Suspect]
     Active Substance: RITUXIMAB-ABBS
     Dosage: STRENGTH 500 MG
     Route: 065
  4. TRUXIMA [Suspect]
     Active Substance: RITUXIMAB-ABBS
     Dosage: STRENGTH 100 MG
     Route: 065

REACTIONS (2)
  - Hyperglycaemia [Recovered/Resolved]
  - Product use in unapproved indication [Unknown]

NARRATIVE: CASE EVENT DATE: 20191219
